FAERS Safety Report 24389343 (Version 1)
Quarter: 2024Q4

REPORT INFORMATION
  Report Type: Spontaneous
  Country: JP (occurrence: JP)
  Receive Date: 20241003
  Receipt Date: 20241003
  Transmission Date: 20250114
  Serious: Yes (Hospitalization, Other)
  Sender: GENMAB
  Company Number: JP-GENMAB-2024-02576AA

PATIENT
  Age: 67 Year
  Sex: Male
  Weight: 49.6 kg

DRUGS (11)
  1. EPKINLY [Suspect]
     Active Substance: EPCORITAMAB-BYSP
     Indication: Diffuse large B-cell lymphoma
     Dosage: 0.16 MILLIGRAM, TOTAL
     Route: 058
     Dates: start: 20240702, end: 20240702
  2. EPKINLY [Suspect]
     Active Substance: EPCORITAMAB-BYSP
     Dosage: 0.8 MILLIGRAM, TOTAL
     Route: 058
     Dates: start: 20240709, end: 20240709
  3. EPKINLY [Suspect]
     Active Substance: EPCORITAMAB-BYSP
     Dosage: 48 MILLIGRAM
     Route: 058
     Dates: start: 20240722, end: 20240722
  4. CORTICOTROPIN [Suspect]
     Active Substance: CORTICOTROPIN
     Dosage: UNK
     Dates: start: 2024
  5. FEBUXOSTAT [Concomitant]
     Active Substance: FEBUXOSTAT
     Dosage: 60 MILLIGRAM(THREE TABLETS), QD, AFTER DINNER
     Dates: start: 20240701, end: 20240730
  6. PITAVASTATIN CALCIUM [Concomitant]
     Active Substance: PITAVASTATIN CALCIUM
     Dosage: 2 MILLIGRAM(ONE TABLET), QD, AFTER BREAKFAST
     Route: 048
     Dates: start: 20240701, end: 20240730
  7. LANSOPRAZOLE [Concomitant]
     Active Substance: LANSOPRAZOLE
     Dosage: 15 MILLIGRAM(ONE TABLET), QD, AFTER BREAKFAST
     Route: 048
     Dates: start: 20240701, end: 20240730
  8. ACYCLOVIR [Concomitant]
     Active Substance: ACYCLOVIR
     Dosage: 200 MILLIGRAM(ONE TABLET), QD, AFTER BREAKFAST
     Dates: start: 20240701, end: 20240730
  9. FLUCONAZOLE [Concomitant]
     Active Substance: FLUCONAZOLE
     Dosage: 100 MILLIGRAM(ONE CAPSULE), QD, AFTER BREAKFAST
     Dates: start: 20240701, end: 20240730
  10. POTASSIUM CHLORIDE [Concomitant]
     Active Substance: POTASSIUM CHLORIDE
     Dosage: 1200 MILLIGRAM(TWO TABLETS), BID, AFTER BREAKFAST AND DINNER
     Dates: start: 20240714, end: 20240730
  11. DECADRON [Concomitant]
     Active Substance: DEXAMETHASONE
     Dosage: 16 MILLIGRAM(FOUR TABLETS), BID, AFTER BREAKFAST AND DINNER
     Dates: start: 20240710, end: 20240713

REACTIONS (8)
  - Diffuse large B-cell lymphoma [Unknown]
  - White blood cell count decreased [Not Recovered/Not Resolved]
  - Neutrophil count decreased [Not Recovered/Not Resolved]
  - Immune effector cell-associated neurotoxicity syndrome [Recovered/Resolved]
  - Cytokine release syndrome [Recovered/Resolved]
  - Immune effector cell-associated neurotoxicity syndrome [Recovered/Resolved]
  - Oxygen saturation decreased [Unknown]
  - Oedema peripheral [Unknown]

NARRATIVE: CASE EVENT DATE: 20240710
